FAERS Safety Report 8539203-3 (Version None)
Quarter: 2012Q3

REPORT INFORMATION
  Report Type: 
  Country: None (occurrence: None)
  Receive Date: 20120716
  Receipt Date: 20120709
  Transmission Date: 20120928
  Serious: Yes (Other)
  Sender: FDA-Public Use
  Company Number: GER/GER/12/0024971

PATIENT
  Age: 20 Year
  Sex: Female
  Weight: 57 kg

DRUGS (5)
  1. ACETAMINOPHEN [Concomitant]
  2. AMOXICILLIN [Concomitant]
  3. FOLIO FORTE (FOLIO) [Concomitant]
  4. FLUOXETINE [Suspect]
     Indication: DEPRESSION
     Dosage: 40 MG, 1 D, ORAL
     Route: 048
     Dates: start: 20100523
  5. CIPROFLOXACIN [Concomitant]

REACTIONS (3)
  - INFLUENZA LIKE ILLNESS [None]
  - ABORTION INDUCED [None]
  - MATERNAL EXPOSURE DURING PREGNANCY [None]
